FAERS Safety Report 16126497 (Version 1)
Quarter: 2019Q2

REPORT INFORMATION
  Report Type: Spontaneous
  Country: US (occurrence: US)
  Receive Date: 20190327
  Receipt Date: 20190327
  Transmission Date: 20190711
  Serious: Yes (Disabling)
  Sender: FDA-Public Use
  Company Number: None

PATIENT
  Age: 76 Year
  Sex: Female
  Weight: 52.2 kg

DRUGS (4)
  1. BYSTOLIC AMLODIPINE [Concomitant]
  2. MULTIVITAMIN [Concomitant]
     Active Substance: VITAMINS
  3. RECLAST [Suspect]
     Active Substance: ZOLEDRONIC ACID
     Indication: OSTEOPOROSIS
     Dosage: ?          QUANTITY:1 INJECTION(S);?
     Route: 042
     Dates: start: 20190311, end: 20190311
  4. MAGNESIUM SULFATE. [Concomitant]
     Active Substance: MAGNESIUM SULFATE

REACTIONS (5)
  - Feeling hot [None]
  - Condition aggravated [None]
  - Arthralgia [None]
  - Chondrocalcinosis pyrophosphate [None]
  - Joint swelling [None]

NARRATIVE: CASE EVENT DATE: 20190312
